FAERS Safety Report 23865066 (Version 1)
Quarter: 2024Q2

REPORT INFORMATION
  Report Type: Report from Study
  Country: US (occurrence: US)
  Receive Date: 20240516
  Receipt Date: 20240516
  Transmission Date: 20240715
  Serious: Yes (Other)
  Sender: FDA-Public Use
  Company Number: US-ABBVIE-5716544

PATIENT
  Age: 66 Year
  Sex: Female

DRUGS (32)
  1. RINVOQ [Suspect]
     Active Substance: UPADACITINIB
     Indication: Rheumatoid arthritis
     Route: 048
     Dates: start: 202310
  2. RINVOQ [Suspect]
     Active Substance: UPADACITINIB
     Indication: Rheumatoid arthritis
     Dosage: TWO TIME PER DAY
     Route: 048
     Dates: start: 20240325
  3. ACYCLOVIR [Concomitant]
     Active Substance: ACYCLOVIR
     Indication: Product used for unknown indication
     Dosage: APPLY BY TOPICAL ROUTE 5 TIMES EVERY DAY TO THE AFFECTED AREAS IS NEEDED.
     Route: 061
  4. ACYCLOVIR [Concomitant]
     Active Substance: ACYCLOVIR
     Indication: Product used for unknown indication
     Route: 048
     Dates: start: 20240131, end: 20240131
  5. AZELASTINE HYDROCHLORIDE\FLUTICASONE PROPIONATE [Concomitant]
     Active Substance: AZELASTINE HYDROCHLORIDE\FLUTICASONE PROPIONATE
     Indication: Product used for unknown indication
     Dosage: 137 MCG-50 MCG/SPRAY NASAL SPRAY, 1 SPRAY BY INTRANASAL ROUTE 2 TIMES EVERY DAY IN EACH NOSTRIL.
     Route: 045
  6. VITAMIN D3 [Concomitant]
     Active Substance: CHOLECALCIFEROL
     Indication: Product used for unknown indication
     Dosage: 50,000 ORAL CAPSULE, TAKE 1 CAPSULE BY ORAL ROUTE ONCE WEEKLY
     Route: 048
     Dates: start: 20230825, end: 20230825
  7. ONDANSETRON [Concomitant]
     Active Substance: ONDANSETRON
     Indication: Product used for unknown indication
     Dosage: PLACE 1 TABLET BY TRANSLINGUAL ROUTE 2 TIMES EVERY DAY ON TOP OF THE  TONGUE WHERE THEY WILL DISS...
     Route: 065
     Dates: start: 20230901
  8. RYBELSUS [Concomitant]
     Active Substance: SEMAGLUTIDE
     Indication: Product used for unknown indication
     Dosage: TAKE 1 TABLET BY ORAL ROUTE EVERY DAY IN THE MORNING 30 MIN BEFORE ANY FOOD, DRINK?OR MEDICATION ...
     Route: 048
  9. RYBELSUS [Concomitant]
     Active Substance: SEMAGLUTIDE
     Indication: Product used for unknown indication
     Dosage: TAKE 1 TABLET BY ORAL ROUTE EVERY DAY IN THE MORNING 30 MIN BEFORE ANY FOOD, DRINK?OR MEDICATION ...
     Route: 048
     Dates: start: 20231206
  10. FLUTICASONE PROPIONATE [Concomitant]
     Active Substance: FLUTICASONE PROPIONATE
     Indication: Product used for unknown indication
     Dosage: 50 MG/ACTUATION NASAL SPRAY, SUSPENSION, INHALE 2 SPRAY BY INTRANASAL ROUTE EVERY DAY IN EACH NOS...
     Route: 045
     Dates: start: 20240325
  11. FLUTICASONE PROPIONATE [Concomitant]
     Active Substance: FLUTICASONE PROPIONATE
     Indication: Product used for unknown indication
     Dosage: 50 MG/ACTUATION NASAL SPRAY, SUSPENSION, INHALE 2 SPRAY BY INTRANASAL ROUTE EVERY DAY IN EACH NOS...
     Route: 045
     Dates: start: 20231206, end: 20240325
  12. BROMFED DM [Concomitant]
     Active Substance: BROMPHENIRAMINE MALEATE\DEXTROMETHORPHAN HYDROBROMIDE\PSEUDOEPHEDRINE HYDROCHLORIDE
     Indication: Product used for unknown indication
     Dosage: 2 MG-30 MG-10 MG/5 ML ORAL SYRUP
     Route: 048
     Dates: start: 20231229, end: 20240324
  13. MONTELUKAST [Concomitant]
     Active Substance: MONTELUKAST SODIUM
     Indication: Product used for unknown indication
     Dosage: TAKE 1 TABLET BY MOUTH EVERY DAY IN THE EVENING.
     Route: 048
     Dates: start: 20240110, end: 20240110
  14. LISINOPRIL [Concomitant]
     Active Substance: LISINOPRIL
     Indication: Product used for unknown indication
     Route: 048
     Dates: start: 20240110, end: 20240110
  15. ROSUVASTATIN CALCIUM [Concomitant]
     Active Substance: ROSUVASTATIN CALCIUM
     Indication: Product used for unknown indication
     Route: 048
  16. PANTOPRAZOLE SODIUM [Concomitant]
     Active Substance: PANTOPRAZOLE SODIUM
     Indication: Product used for unknown indication
     Route: 048
     Dates: start: 20240131, end: 20240131
  17. TAMIFLU [Concomitant]
     Active Substance: OSELTAMIVIR PHOSPHATE
     Indication: Product used for unknown indication
     Route: 048
     Dates: start: 20240209, end: 20240325
  18. DEXAMETHASONE [Concomitant]
     Active Substance: DEXAMETHASONE
     Indication: Product used for unknown indication
     Route: 048
  19. CHLORZOXAZONE [Concomitant]
     Active Substance: CHLORZOXAZONE
     Indication: Product used for unknown indication
     Dosage: TIME INTERVAL: 0.33333333 DAYS
     Route: 048
     Dates: start: 20240325
  20. DULOXETINE [Concomitant]
     Active Substance: DULOXETINE
     Indication: Product used for unknown indication
     Dosage: TIME INTERVAL: 0.33333333 DAYS
     Route: 048
  21. ALBUTEROL SULFATE [Concomitant]
     Active Substance: ALBUTEROL SULFATE
     Indication: Product used for unknown indication
     Dosage: 90 MCG/ACTUATION AEROSOL INHALER, INHALE 2 PUFF BY INHALATION  ROUTE EVERY 4 - 6 HOURS AS NEEDED.
     Route: 055
     Dates: start: 20230825
  22. CEPHALEXIN [Concomitant]
     Active Substance: CEPHALEXIN
     Indication: Product used for unknown indication
     Route: 048
     Dates: start: 20240325
  23. CHLORZOXAZONE [Concomitant]
     Active Substance: CHLORZOXAZONE
     Indication: Product used for unknown indication
     Dosage: TIME INTERVAL: 0.33333333 DAYS
     Route: 048
     Dates: start: 20240325
  24. LEVOTHYROXINE [Concomitant]
     Active Substance: LEVOTHYROXINE\LEVOTHYROXINE SODIUM
     Indication: Product used for unknown indication
     Route: 048
  25. METHOTREXATE SODIUM [Concomitant]
     Active Substance: METHOTREXATE SODIUM
     Indication: Product used for unknown indication
     Dosage: TAKE SIX TABLET BY ORAL ROUTE EVERY WEEK.
     Route: 048
  26. TIZANIDINE [Concomitant]
     Active Substance: TIZANIDINE
     Indication: Product used for unknown indication
     Dosage: TAKE 1 TABLET BY ORAL ROUTE EVERY 8 HOURS AS NEEDED NOT TO EXCEED 3 DOSES IN 24 HOURS.
     Route: 048
  27. FOLIC ACID [Concomitant]
     Active Substance: FOLIC ACID
     Indication: Product used for unknown indication
     Route: 048
  28. ZINC [Concomitant]
     Active Substance: PYRITHIONE ZINC\ZINC\ZINC CHLORIDE
     Indication: Product used for unknown indication
     Route: 065
     Dates: start: 20240325
  29. AZELASTINE [Concomitant]
     Active Substance: AZELASTINE\AZELASTINE HYDROCHLORIDE
     Indication: Product used for unknown indication
     Dosage: STRENGTH: 137 MCG (0.1 %) NASAL SPRAY AEROSOL. SPRAY 1 SPRAY BY INTRANASAL ROUTE 2 TIMES EVERY DA...
     Route: 045
     Dates: start: 20220114, end: 20240325
  30. LORATADINE [Concomitant]
     Active Substance: LORATADINE
     Indication: Product used for unknown indication
     Route: 048
  31. PREDNISONE [Concomitant]
     Active Substance: PREDNISONE
     Indication: Product used for unknown indication
     Dosage: TAKE 1.5 TABLET BY ORAL ROUTE EVERY DAY.
     Route: 048
  32. FUROSEMIDE [Concomitant]
     Active Substance: FUROSEMIDE
     Indication: Product used for unknown indication
     Route: 048

REACTIONS (32)
  - Idiopathic intracranial hypertension [Unknown]
  - Speech disorder [Unknown]
  - Foot fracture [Recovering/Resolving]
  - Fatigue [Unknown]
  - Osteopenia [Unknown]
  - Mobility decreased [Unknown]
  - Initial insomnia [Unknown]
  - Pain [Recovering/Resolving]
  - Peripheral swelling [Recovering/Resolving]
  - Type 2 diabetes mellitus [Unknown]
  - Essential hypertension [Unknown]
  - Gait disturbance [Unknown]
  - Swelling [Unknown]
  - Asthenia [Unknown]
  - Headache [Not Recovered/Not Resolved]
  - Visual impairment [Unknown]
  - Joint injury [Unknown]
  - Diplopia [Unknown]
  - Incision site swelling [Unknown]
  - Procedural site reaction [Unknown]
  - Gastrooesophageal reflux disease [Unknown]
  - Hypothyroidism [Unknown]
  - Rhinitis allergic [Unknown]
  - Cellulitis [Unknown]
  - Obesity [Unknown]
  - Bone marrow oedema [Unknown]
  - Osteoporosis [Unknown]
  - Hyperglycaemia [Unknown]
  - Cerebrovascular accident [Unknown]
  - Vision blurred [Unknown]
  - Hydrocephalus [Unknown]
  - Tenderness [Unknown]

NARRATIVE: CASE EVENT DATE: 20240315
